FAERS Safety Report 8839400 (Version 2)
Quarter: 2013Q1

REPORT INFORMATION
  Report Type: Spontaneous
  Country: US (occurrence: US)
  Receive Date: 20121015
  Receipt Date: 20130201
  Transmission Date: 20140127
  Serious: Yes (Hospitalization)
  Sender: FDA-Public Use
  Company Number: US-BAYER-2012-104399

PATIENT
  Age: 34 Year
  Sex: Female
  Weight: 96.6 kg

DRUGS (11)
  1. YAZ [Suspect]
     Indication: CONTRACEPTION
     Dosage: UNK
     Dates: start: 2008, end: 20101026
  2. YAZ [Suspect]
     Indication: PREMENSTRUAL SYNDROME
  3. YASMIN [Suspect]
  4. MULTI VITAMIN [Concomitant]
     Indication: VITAMIN SUPPLEMENTATION
     Dosage: UNK UNK, QD
     Route: 048
     Dates: start: 1996
  5. LYSIRE [Concomitant]
     Indication: ORAL HERPES
     Dosage: UNK UNK, QD
     Route: 048
     Dates: start: 1996
  6. TYLENOL [Concomitant]
     Indication: PAIN
     Dosage: 650 MG, UNK
     Route: 048
  7. MOTRIN [Concomitant]
     Indication: PAIN
     Dosage: 400 MG, PRN
     Route: 048
     Dates: start: 1996
  8. VITAMIN C [Concomitant]
     Indication: PROPHYLAXIS
     Route: 048
  9. PROZAC [Concomitant]
     Indication: DEPRESSION
     Dosage: 10 MG, DAILY
     Route: 048
     Dates: start: 20100802
  10. PRENATAL VITAMINS [Concomitant]
     Indication: VITAMIN SUPPLEMENTATION
     Dosage: UNK UNK, QD
     Route: 048
     Dates: start: 20100802
  11. NORCO [Concomitant]
     Indication: PAIN

REACTIONS (7)
  - Pulmonary embolism [Recovered/Resolved]
  - Injury [Recovered/Resolved]
  - General physical health deterioration [Recovered/Resolved]
  - Anxiety [None]
  - Emotional distress [None]
  - Pain [Recovered/Resolved]
  - Pain [None]
